FAERS Safety Report 6183294-4 (Version None)
Quarter: 2009Q2

REPORT INFORMATION
  Report Type: 
  Country: None (occurrence: None)
  Receive Date: 20090507
  Receipt Date: 20090430
  Transmission Date: 20091009
  Serious: Yes (Other)
  Sender: FDA-Public Use
  Company Number: GB-B.I. PHARMACEUTICALS,INC./RIDGEFIELD-2009-DE-03526GD

PATIENT
  Age: 50 Year
  Sex: Male

DRUGS (5)
  1. NEVIRAPINE [Suspect]
     Indication: HIV INFECTION
  2. ZIDOVUDINE [Suspect]
     Indication: HIV INFECTION
  3. DIDANOSINE [Suspect]
     Indication: HIV INFECTION
  4. LAMIVUDINE [Suspect]
     Indication: HIV INFECTION
  5. EFAVIRENZ [Suspect]
     Indication: HIV INFECTION

REACTIONS (3)
  - HEPATIC FIBROSIS [None]
  - LIVER DISORDER [None]
  - NODULAR REGENERATIVE HYPERPLASIA [None]
